FAERS Safety Report 7582243-1 (Version None)
Quarter: 2011Q2

REPORT INFORMATION
  Report Type: 
  Country: None (occurrence: None)
  Receive Date: 20110630
  Receipt Date: 20110627
  Transmission Date: 20111010
  Serious: No
  Sender: FDA-Public Use
  Company Number: US-TEVA-288140USA

PATIENT
  Sex: Female
  Weight: 61.29 kg

DRUGS (4)
  1. COPAXONE [Suspect]
     Route: 058
     Dates: start: 20100806
  2. BUPROPION HCL [Concomitant]
  3. BACLOFEN [Concomitant]
  4. FLUOXETINE HYDROCHLORIDE [Concomitant]

REACTIONS (1)
  - ALOPECIA [None]
